FAERS Safety Report 14236673 (Version 1)
Quarter: 2017Q4

REPORT INFORMATION
  Report Type: Report from Study
  Country: None (occurrence: US)
  Receive Date: 20171129
  Receipt Date: 20171129
  Transmission Date: 20180321
  Serious: Yes (Death)
  Sender: FDA-Public Use
  Company Number: US-VIFOR (INTERNATIONAL) INC.-VIT-2017-12790

PATIENT
  Sex: Female

DRUGS (20)
  1. GLIPIZIDE. [Concomitant]
     Active Substance: GLIPIZIDE
     Dates: start: 20170525
  2. ZEMPLAR [Concomitant]
     Active Substance: PARICALCITOL
     Dates: start: 20170525
  3. LABETALOL [Concomitant]
     Active Substance: LABETALOL\LABETALOL HYDROCHLORIDE
     Dates: start: 20170525
  4. METOLAZONE. [Concomitant]
     Active Substance: METOLAZONE
     Dates: start: 20170525
  5. VELTASSA [Suspect]
     Active Substance: PATIROMER
     Indication: HYPERKALAEMIA
     Route: 048
     Dates: start: 20170526, end: 2017
  6. NITROGLYCER DIS [Concomitant]
     Dates: start: 20170525
  7. ARANESP [Concomitant]
     Active Substance: DARBEPOETIN ALFA
     Dates: start: 20170525
  8. MAGNESIUM OXIDE. [Concomitant]
     Active Substance: MAGNESIUM OXIDE
     Dates: start: 20170525
  9. THIAMINE HYDROCHLORIDE. [Concomitant]
     Active Substance: THIAMINE HYDROCHLORIDE
     Dates: start: 20170525
  10. VENOFER [Concomitant]
     Active Substance: IRON SUCROSE
     Indication: PRODUCT USED FOR UNKNOWN INDICATION
     Dates: start: 20170525
  11. PROAIR HFA [Concomitant]
     Active Substance: ALBUTEROL SULFATE
     Dates: start: 20170525
  12. CARVEDILOL. [Concomitant]
     Active Substance: CARVEDILOL
     Dates: start: 20170525
  13. CLONIDINE. [Concomitant]
     Active Substance: CLONIDINE
     Dates: start: 20170525
  14. LASIX [Concomitant]
     Active Substance: FUROSEMIDE
     Dates: start: 20170525
  15. NOVOLIN R [Concomitant]
     Active Substance: INSULIN HUMAN
     Dates: start: 20170525
  16. ALBUTEROL. [Concomitant]
     Active Substance: ALBUTEROL
     Dates: start: 20170525
  17. HYDRALAZINE [Concomitant]
     Active Substance: HYDRALAZINE HYDROCHLORIDE
     Dates: start: 20170525
  18. NIFEDIPINE. [Concomitant]
     Active Substance: NIFEDIPINE
     Dates: start: 20170525
  19. RENVELA [Concomitant]
     Active Substance: SEVELAMER CARBONATE
     Dates: start: 20170525
  20. GABAPENTIN. [Concomitant]
     Active Substance: GABAPENTIN
     Dates: start: 20170525

REACTIONS (1)
  - Death [Fatal]

NARRATIVE: CASE EVENT DATE: 2017
